FAERS Safety Report 5976736-8 (Version None)
Quarter: 2008Q4

REPORT INFORMATION
  Report Type: 
  Country: None (occurrence: None)
  Receive Date: 20081125
  Receipt Date: 20081118
  Transmission Date: 20090506
  Serious: Yes (Death)
  Sender: FDA-Public Use
  Company Number: 235455K07USA

PATIENT
  Age: 44 Year
  Sex: Female
  Weight: 105 kg

DRUGS (6)
  1. REBIF [Suspect]
     Indication: MULTIPLE SCLEROSIS
     Dosage: NOT REPORTED, 3 IN 1 WEEKS, SUBCUTANEOUS
     Route: 058
     Dates: start: 20060127, end: 20060616
  2. METHADONE HCL [Suspect]
     Indication: DRUG ABUSE
     Dosage: 20 MG, 2 IN 1 DAYS, ORAL
     Route: 048
     Dates: start: 20060612, end: 20060616
  3. METHADONE HCL [Suspect]
     Indication: DRUG WITHDRAWAL SYNDROME
     Dosage: 20 MG, 2 IN 1 DAYS, ORAL
     Route: 048
     Dates: start: 20060612, end: 20060616
  4. ANTIHYPERTENSIVE MEDICATIONS (ANTIHYPERTENSIVES) [Concomitant]
  5. CYMBALTA [Suspect]
  6. KLONOPIN [Concomitant]

REACTIONS (3)
  - DRUG DEPENDENCE [None]
  - DRUG PRESCRIBING ERROR [None]
  - DRUG TOXICITY [None]
